FAERS Safety Report 25786252 (Version 1)
Quarter: 2025Q3

REPORT INFORMATION
  Report Type: Spontaneous
  Country: US (occurrence: None)
  Receive Date: 20250910
  Receipt Date: 20250910
  Transmission Date: 20251020
  Serious: Yes (Hospitalization)
  Sender: FDA-CTU
  Company Number: None

PATIENT
  Sex: Male

DRUGS (8)
  1. LENALIDOMIDE [Suspect]
     Active Substance: LENALIDOMIDE
     Indication: Plasma cell myeloma
     Dosage: FREQUENCY : DAILY;?
     Route: 048
  2. ACYCLOVIR [Concomitant]
     Active Substance: ACYCLOVIR
  3. CALCIUM PLUS CAP D3 [Concomitant]
  4. D3 TAB 2000UNIT [Concomitant]
  5. ELIOUIS TAB 2.5MG [Concomitant]
  6. FOLIC ACID TAB 1MG [Concomitant]
  7. GABAPENTIN [Concomitant]
     Active Substance: GABAPENTIN
  8. MULTIVITAMIN TAB ADLT 50+ [Concomitant]

REACTIONS (1)
  - Hospitalisation [None]
